FAERS Safety Report 4371603-8 (Version None)
Quarter: 2004Q2

REPORT INFORMATION
  Report Type: 
  Country: None (occurrence: None)
  Receive Date: 20040602
  Receipt Date: 20040518
  Transmission Date: 20050107
  Serious: Yes (Other)
  Sender: FDA-Public Use
  Company Number: US-SHR-04-021761

PATIENT
  Age: 55 Year
  Sex: Male
  Weight: 56.4 kg

DRUGS (14)
  1. BETASERON [Suspect]
     Indication: MULTIPLE SCLEROSIS
     Dosage: 8 MIU, EVERY 2D, HS, SUBCUTANEOUS
     Route: 058
     Dates: start: 19950809
  2. DEPAKOTE [Concomitant]
  3. ARICEPT      JPN   (DONEPEZIL HYDROCHLORIDE) [Concomitant]
  4. TIAZAC [Concomitant]
  5. ZOCOR [Concomitant]
  6. XANAX  USA (ALPRAZOLAM) [Concomitant]
  7. CALCIUM (CALCIUM) [Concomitant]
  8. GLUCOSAMINE (GLUCOSAMINE) [Concomitant]
  9. BETACAROTENE (BETACAROTENE) [Concomitant]
  10. BIOFLAVONOIDS [Concomitant]
  11. VITAMIN C [Concomitant]
  12. VITAMIN B COMPLEX CAP [Concomitant]
  13. MVI  USA   (VITAMINS NOS) [Concomitant]
  14. HYOSCYAMINE (HYOSCYAMINE) [Concomitant]

REACTIONS (2)
  - HYPERCALCIURIA [None]
  - OSTEOPOROSIS [None]
